FAERS Safety Report 13567732 (Version 1)
Quarter: 2017Q2

REPORT INFORMATION
  Report Type: Spontaneous
  Country: CA (occurrence: US)
  Receive Date: 20170521
  Receipt Date: 20170521
  Transmission Date: 20170830
  Serious: Yes (Hospitalization)
  Sender: FDA-Public Use
  Company Number: None

PATIENT
  Age: 43 Year
  Sex: Male
  Weight: 105 kg

DRUGS (1)
  1. INTRON A [Suspect]
     Active Substance: INTERFERON ALFA-2B
     Dates: end: 20170510

REACTIONS (5)
  - Hypophosphataemia [None]
  - Atrial fibrillation [None]
  - Loss of consciousness [None]
  - Hypokalaemia [None]
  - Fall [None]

NARRATIVE: CASE EVENT DATE: 20170512
